APPROVED DRUG PRODUCT: LENALIDOMIDE
Active Ingredient: LENALIDOMIDE
Strength: 10MG
Dosage Form/Route: CAPSULE;ORAL
Application: A217265 | Product #003 | TE Code: AB
Applicant: QILU PHARMACEUTICAL CO LTD
Approved: Feb 22, 2024 | RLD: No | RS: No | Type: RX